FAERS Safety Report 14322155 (Version 1)
Quarter: 2017Q4

REPORT INFORMATION
  Report Type: Spontaneous
  Country: US (occurrence: US)
  Receive Date: 20171225
  Receipt Date: 20171225
  Transmission Date: 20180321
  Serious: Yes (Other)
  Sender: FDA-Public Use
  Company Number: US-ZYDUS-018472

PATIENT
  Age: 50 Year
  Sex: Female

DRUGS (1)
  1. PHENTERMINE. [Suspect]
     Active Substance: PHENTERMINE
     Indication: WEIGHT INCREASED
     Route: 065

REACTIONS (8)
  - Carotid artery dissection [Unknown]
  - Headache [Unknown]
  - Carotid artery occlusion [Unknown]
  - Infarction [Unknown]
  - Dysarthria [Unknown]
  - Hemiparesis [Unknown]
  - Neck pain [Unknown]
  - Hypoperfusion [Unknown]
